FAERS Safety Report 7221782-X (Version None)
Quarter: 2011Q1

REPORT INFORMATION
  Report Type: 
  Country: None (occurrence: None)
  Receive Date: 20110112
  Receipt Date: 20081112
  Transmission Date: 20110831
  Serious: Yes (Death)
  Sender: FDA-Public Use
  Company Number: PHHY2008US37328

PATIENT
  Age: 8 Year
  Sex: Male

DRUGS (1)
  1. TOBI [Suspect]
     Indication: CYSTIC FIBROSIS
     Dosage: 300 MG, BID WITH 28 DAYS ON AND 28 DAYS OFF
     Dates: start: 20081007, end: 20081112

REACTIONS (3)
  - DISEASE PROGRESSION [None]
  - CARDIO-RESPIRATORY ARREST [None]
  - CYSTIC FIBROSIS [None]
